FAERS Safety Report 11389608 (Version 1)
Quarter: 2015Q3

REPORT INFORMATION
  Report Type: Spontaneous
  Country: US (occurrence: US)
  Receive Date: 20150817
  Receipt Date: 20150817
  Transmission Date: 20151125
  Serious: No
  Sender: FDA-Public Use
  Company Number: US-TAKEDA-2015TUS004308

PATIENT
  Age: 71 Year
  Sex: Male
  Weight: 97.52 kg

DRUGS (11)
  1. ROZEREM [Suspect]
     Active Substance: RAMELTEON
     Indication: INSOMNIA
     Dosage: 8 MG, 1 TABLET AT BEDTIME, QHS
     Route: 048
     Dates: start: 20150331, end: 20150401
  2. SIMVASTATIN. [Concomitant]
     Active Substance: SIMVASTATIN
     Dosage: 20 MG, DAILY NIGHT AT BEDTIME (QHS)
     Route: 048
     Dates: start: 2013
  3. VICTOZA [Concomitant]
     Active Substance: LIRAGLUTIDE
     Indication: DIABETES MELLITUS
     Dosage: 12 UNITS, DAILY IN THE MORNING (QAM)
     Route: 050
     Dates: start: 2013
  4. MAGNESIUM OXIDE. [Concomitant]
     Active Substance: MAGNESIUM OXIDE
     Indication: MUSCLE SPASMS
     Dosage: 400 MG, REFUSED TO PROVIDE FREQUENCY
     Route: 048
     Dates: start: 2013
  5. BYSTOLIC [Concomitant]
     Active Substance: NEBIVOLOL HYDROCHLORIDE
     Indication: HYPERTENSION
     Dosage: 5 MG, EVERY NIGHT AT BEDTIME (QHS) SINCE YEARS
     Route: 048
  6. BENAZEPRIL [Concomitant]
     Active Substance: BENAZEPRIL HYDROCHLORIDE
     Indication: HYPERTENSION
     Dosage: 20 MG, BID
     Route: 048
     Dates: start: 2013
  7. BAYER ASPIRIN [Concomitant]
     Active Substance: ASPIRIN
     Indication: CARDIOVASCULAR EVENT PROPHYLAXIS
     Dosage: 325 MG, DAILY IN THE MORNING (QAM)
     Route: 048
     Dates: start: 2013
  8. LEVOTHYROXINE. [Concomitant]
     Active Substance: LEVOTHYROXINE
     Dosage: 100 MG, DAILY IN THE MORNING (QAM)
     Dates: start: 2013
  9. BUPROPION XL [Concomitant]
     Active Substance: BUPROPION
     Indication: NERVOUSNESS
     Dosage: 150 MG, REFUSED TO PROVIDE THE FREQUENCY
     Route: 048
     Dates: start: 2013
  10. MELOXICAM. [Concomitant]
     Active Substance: MELOXICAM
     Indication: MUSCLE SPASMS
     Dosage: 15 MG, DAILY IN THE MORNING (QAM)
     Route: 048
     Dates: start: 2013
  11. LANTUS [Concomitant]
     Active Substance: INSULIN GLARGINE
     Dosage: 8 UNITS, DAILY IN THE MORNING (QPM)
     Route: 050
     Dates: start: 2013

REACTIONS (3)
  - Emotional disorder [Recovered/Resolved]
  - Drug ineffective [Recovered/Resolved]
  - Hallucination [Recovered/Resolved]

NARRATIVE: CASE EVENT DATE: 20150331
